FAERS Safety Report 8551994-4 (Version None)
Quarter: 2012Q3

REPORT INFORMATION
  Report Type: 
  Country: None (occurrence: None)
  Receive Date: 20120730
  Receipt Date: 20120723
  Transmission Date: 20120928
  Serious: Yes (Other)
  Sender: FDA-Public Use
  Company Number: US-RB-042744-12

PATIENT
  Age: 36 Year
  Sex: Male

DRUGS (2)
  1. KLONOPIN [Suspect]
     Indication: ANXIETY DISORDER
     Dosage: DOSE DETAILS NOT PROVIDED
     Route: 065
  2. SUBOXONE [Suspect]
     Indication: PRODUCT USED FOR UNKNOWN INDICATION
     Dosage: DOSE DETAILS NOT PROVIDED
     Route: 065

REACTIONS (3)
  - LOSS OF CONSCIOUSNESS [None]
  - INCOHERENT [None]
  - AMNESIA [None]
